FAERS Safety Report 17240325 (Version 1)
Quarter: 2019Q4

REPORT INFORMATION
  Report Type: Spontaneous
  Country: US (occurrence: US)
  Receive Date: 20191211
  Receipt Date: 20191211
  Transmission Date: 20200122
  Serious: Yes (Hospitalization)
  Sender: FDA-Public Use
  Company Number: None

PATIENT
  Age: 46 Year
  Sex: Female

DRUGS (7)
  1. ONDANSETRON TAB 4MG [Concomitant]
     Active Substance: ONDANSETRON
  2. NITROFLURANTN [Concomitant]
  3. ESTRA/NORETH [Concomitant]
  4. PREDNISONE TAB 10MG [Concomitant]
     Active Substance: PREDNISONE
  5. IBUPROFEN TAB 800MG [Concomitant]
     Active Substance: IBUPROFEN
  6. HUMIRA [Suspect]
     Active Substance: ADALIMUMAB
     Indication: RHEUMATOID ARTHRITIS
     Dosage: 40MG/0.8ML PEN (2-2) ; EVERY OTHER WEEK :INJECTION?
     Dates: start: 20171020
  7. OXYCODONE AND ACETAMINOPHEN [Concomitant]
     Active Substance: ACETAMINOPHEN\OXYCODONE HYDROCHLORIDE

REACTIONS (1)
  - Intentional dose omission [None]
